FAERS Safety Report 17758294 (Version 7)
Quarter: 2021Q3

REPORT INFORMATION
  Report Type: Report from Study
  Country: US (occurrence: US)
  Receive Date: 20200507
  Receipt Date: 20210809
  Transmission Date: 20211014
  Serious: No
  Sender: FDA-Public Use
  Company Number: NVSC2020US124628

PATIENT
  Sex: Male

DRUGS (2)
  1. COSENTYX [Suspect]
     Active Substance: SECUKINUMAB
     Indication: PSORIASIS
     Dosage: UNK
     Route: 065
  2. COSENTYX [Suspect]
     Active Substance: SECUKINUMAB
     Dosage: 300 MG, QMO
     Route: 058

REACTIONS (6)
  - Swelling [Unknown]
  - Treatment failure [Unknown]
  - Rash [Unknown]
  - Product dose omission issue [Unknown]
  - Psoriasis [Unknown]
  - Skin plaque [Recovered/Resolved]
